FAERS Safety Report 10842180 (Version 1)
Quarter: 2015Q1

REPORT INFORMATION
  Report Type: Spontaneous
  Country: FR (occurrence: FR)
  Receive Date: 20150220
  Receipt Date: 20150220
  Transmission Date: 20150721
  Serious: Yes (Hospitalization)
  Sender: FDA-Public Use
  Company Number: PHHY2015FR020437

PATIENT
  Age: 74 Year
  Sex: Male

DRUGS (6)
  1. OROCAL VITAMINE D3 [Concomitant]
     Indication: OSTEOPOROSIS
     Dosage: 500 MG, BID
     Route: 048
     Dates: start: 201410
  2. RISPERDAL [Concomitant]
     Active Substance: RISPERIDONE
     Indication: DELUSION
     Dosage: 1 MG, QD
     Route: 065
     Dates: start: 201412
  3. INORIAL [Concomitant]
     Active Substance: BILASTINE
     Indication: PRURITUS
     Dosage: 20 MG, QD
     Route: 065
     Dates: start: 201410
  4. PARACETAMOL [Concomitant]
     Active Substance: ACETAMINOPHEN
     Indication: FRACTURE PAIN
     Dosage: 1 G, TID
     Route: 065
     Dates: start: 201410
  5. ACLASTA [Suspect]
     Active Substance: ZOLEDRONIC ACID
     Indication: OSTEOPOROSIS
     Dosage: UNK OT, ONCE/SINGLE
     Route: 042
     Dates: start: 20150115, end: 20150115
  6. SORIATANE [Concomitant]
     Active Substance: ACITRETIN
     Indication: PSORIASIS
     Dosage: 10 MG, QD
     Route: 065
     Dates: start: 201412, end: 201501

REACTIONS (3)
  - Monoparesis [Recovered/Resolved]
  - Chest pain [Recovered/Resolved]
  - Dyspnoea [Recovered/Resolved]

NARRATIVE: CASE EVENT DATE: 20150115
